FAERS Safety Report 7910567-4 (Version None)
Quarter: 2011Q4

REPORT INFORMATION
  Report Type: 
  Country: None (occurrence: None)
  Receive Date: 20111111
  Receipt Date: 20111110
  Transmission Date: 20120403
  Serious: Yes (Life-Threatening)
  Sender: FDA-Public Use
  Company Number: JP-PFIZER INC-2011276135

PATIENT
  Age: 7 Year
  Sex: Male

DRUGS (4)
  1. SOLU-CORTEF [Suspect]
     Indication: ASTHMA
     Dosage: 200 MG, DAILY
     Route: 041
     Dates: start: 20111028, end: 20111028
  2. SINGULAIR [Concomitant]
     Indication: ASTHMA
     Dosage: UNK
     Route: 048
  3. HOKUNALIN [Concomitant]
     Indication: ASTHMA
     Dosage: UNK
     Route: 062
  4. SODIUM CHLORIDE [Suspect]
     Dosage: UNK
     Route: 041
     Dates: start: 20111028, end: 20111028

REACTIONS (4)
  - URTICARIA [None]
  - ASTHENIA [None]
  - COUGH [None]
  - NAUSEA [None]
